FAERS Safety Report 9745432 (Version 1)
Quarter: 2013Q4

REPORT INFORMATION
  Report Type: Spontaneous
  Country: US (occurrence: None)
  Receive Date: 20131204
  Receipt Date: 20131204
  Transmission Date: 20140711
  Serious: Yes (Hospitalization)
  Sender: FDA-Public Use
  Company Number: FK201305105

PATIENT
  Age: 56 Year
  Sex: Female

DRUGS (10)
  1. HEPARIN [Suspect]
     Indication: PRODUCT USED FOR UNKNOWN INDICATION
     Dates: start: 201301, end: 201301
  2. ARIXTRA (FONDAPARINUX SODIUM) [Suspect]
     Indication: THROMBOSIS
     Route: 058
     Dates: start: 201301
  3. WARFARIN SODIUM [Suspect]
     Indication: PRODUCT USED FOR UNKNOWN INDICATION
  4. UNKNOWN DRUG [Suspect]
     Indication: PRODUCT USED FOR UNKNOWN INDICATION
  5. KLONOPIN (CLONAZEPAM) (TABLETS) [Concomitant]
  6. CATAPRES (CLONIDINE) [Concomitant]
  7. NEURONTIN (GABAPENTIN) [Concomitant]
  8. PHENOBARBITAL [Concomitant]
  9. LOVAZA  (OMEGA-3-ACID ETHYL ESTER) [Concomitant]
  10. VITAMIN C [Concomitant]

REACTIONS (6)
  - Chest discomfort [None]
  - Feeling abnormal [None]
  - Dyspnoea [None]
  - Pulmonary embolism [None]
  - Chest discomfort [None]
  - Condition aggravated [None]
